FAERS Safety Report 17746053 (Version 1)
Quarter: 2020Q2

REPORT INFORMATION
  Report Type: Spontaneous
  Country: US (occurrence: US)
  Receive Date: 20200505
  Receipt Date: 20200505
  Transmission Date: 20200714
  Serious: Yes (Other)
  Sender: FDA-Public Use
  Company Number: US-PFIZER INC-2020178557

PATIENT
  Age: 60 Year
  Sex: Female

DRUGS (1)
  1. LYRICA [Suspect]
     Active Substance: PREGABALIN
     Dosage: UNK

REACTIONS (6)
  - Drug hypersensitivity [Unknown]
  - Lupus-like syndrome [Unknown]
  - Cough [Unknown]
  - Fibromyalgia [Unknown]
  - Multiple sclerosis [Unknown]
  - Asthma [Unknown]
